FAERS Safety Report 25700336 (Version 1)
Quarter: 2025Q3

REPORT INFORMATION
  Report Type: Spontaneous
  Country: US (occurrence: US)
  Receive Date: 20250819
  Receipt Date: 20250819
  Transmission Date: 20251021
  Serious: No
  Sender: DAIICHI
  Company Number: US-DAIICHI SANKYO, INC.-DS-2025-158566-USAA

PATIENT
  Age: 5 Decade
  Sex: Female

DRUGS (1)
  1. DATROWAY [Suspect]
     Active Substance: DATOPOTAMAB DERUXTECAN-DLNK
     Indication: Breast cancer
     Route: 065
     Dates: start: 202507

REACTIONS (5)
  - Eye irritation [Not Recovered/Not Resolved]
  - Inflammation [Not Recovered/Not Resolved]
  - Swelling [Not Recovered/Not Resolved]
  - Ocular discomfort [Not Recovered/Not Resolved]
  - Keratitis [Not Recovered/Not Resolved]

NARRATIVE: CASE EVENT DATE: 20250101
